FAERS Safety Report 17761175 (Version 2)
Quarter: 2020Q3

REPORT INFORMATION
  Report Type: Spontaneous
  Country: US (occurrence: US)
  Receive Date: 20200508
  Receipt Date: 20200813
  Transmission Date: 20201102
  Serious: No
  Sender: FDA-Public Use
  Company Number: US-HTU-2020US020525

PATIENT
  Sex: Female

DRUGS (1)
  1. VALCHLOR [Suspect]
     Active Substance: MECHLORETHAMINE
     Indication: CUTANEOUS T-CELL LYMPHOMA
     Dosage: UNK, QD
     Route: 061
     Dates: end: 2020

REACTIONS (1)
  - Application site pain [Recovering/Resolving]

NARRATIVE: CASE EVENT DATE: 2020
